FAERS Safety Report 7986413-X (Version None)
Quarter: 2011Q4

REPORT INFORMATION
  Report Type: 
  Country: None (occurrence: None)
  Receive Date: 20111216
  Receipt Date: 20111206
  Transmission Date: 20120403
  Serious: Yes (Death)
  Sender: FDA-Public Use
  Company Number: TR-ACTELION-A-CH2011-58025

PATIENT
  Age: 43 Year
  Sex: Female
  Weight: 60 kg

DRUGS (3)
  1. VENTAVIS [Concomitant]
     Indication: PULMONARY ARTERIAL HYPERTENSION
     Dosage: UNK
     Dates: start: 20110601
  2. TRACLEER [Suspect]
     Indication: PULMONARY ARTERIAL HYPERTENSION
     Dosage: 125 MG, BID
     Route: 048
  3. TRACLEER [Suspect]
     Dosage: 65.2 MG, BID
     Route: 048
     Dates: start: 20070301

REACTIONS (3)
  - PULMONARY ARTERIAL HYPERTENSION [None]
  - EXERCISE TOLERANCE DECREASED [None]
  - DISEASE PROGRESSION [None]
